FAERS Safety Report 17374336 (Version 1)
Quarter: 2020Q1

REPORT INFORMATION
  Report Type: Spontaneous
  Country: US (occurrence: US)
  Receive Date: 20200205
  Receipt Date: 20200205
  Transmission Date: 20200409
  Serious: No
  Sender: FDA-Public Use
  Company Number: US-PFIZER INC-2020046683

PATIENT
  Sex: Female

DRUGS (1)
  1. PREGABALIN. [Suspect]
     Active Substance: PREGABALIN
     Dosage: 600 MG, 2X/DAY

REACTIONS (7)
  - Vomiting [Unknown]
  - Influenza [Unknown]
  - Pain [Unknown]
  - Weight increased [Unknown]
  - Drug ineffective [Unknown]
  - Prescribed overdose [Unknown]
  - Malaise [Unknown]
